FAERS Safety Report 5219022-6 (Version None)
Quarter: 2007Q1

REPORT INFORMATION
  Report Type: 
  Country: None (occurrence: None)
  Receive Date: 20070125
  Receipt Date: 20070117
  Transmission Date: 20070707
  Serious: Yes (Death, Hospitalization)
  Sender: FDA-Public Use
  Company Number: US-ELI_LILLY_AND_COMPANY-US200610001910

PATIENT
  Age: 50 Year
  Sex: Female
  Weight: 60.77 kg

DRUGS (2)
  1. GEMZAR [Suspect]
     Indication: BREAST CANCER METASTATIC
     Dosage: UNK, UNK
     Route: 042
     Dates: start: 20060922, end: 20060922
  2. TAXOL [Concomitant]
     Indication: BREAST CANCER METASTATIC
     Dates: start: 20060922, end: 20060922

REACTIONS (3)
  - LOSS OF CONSCIOUSNESS [None]
  - MALIGNANT NEOPLASM PROGRESSION [None]
  - MULTI-ORGAN FAILURE [None]
